FAERS Safety Report 5742210-7 (Version None)
Quarter: 2008Q2

REPORT INFORMATION
  Report Type: 
  Country: None (occurrence: None)
  Receive Date: 20080514
  Receipt Date: 20080514
  Transmission Date: 20081010
  Serious: Yes (Hospitalization, Other)
  Sender: FDA-Public Use
  Company Number: None

PATIENT
  Age: 66 Year
  Sex: Male
  Weight: 146.5118 kg

DRUGS (1)
  1. DIGITEK  RITE AID PHARMACY [Suspect]
     Indication: HEART RATE IRREGULAR
     Dosage: .125 MILAGRAM DAILY PO
     Route: 048
     Dates: start: 20070110, end: 20080513

REACTIONS (2)
  - MALAISE [None]
  - UNEVALUABLE EVENT [None]
